FAERS Safety Report 12595099 (Version 2)
Quarter: 2016Q3

REPORT INFORMATION
  Report Type: Spontaneous
  Country: DE (occurrence: DE)
  Receive Date: 20160726
  Receipt Date: 20160822
  Transmission Date: 20161109
  Serious: No
  Sender: FDA-Public Use
  Company Number: DE-BRISTOL-MYERS SQUIBB COMPANY-BMS-2016-057074

PATIENT
  Sex: Female

DRUGS (1)
  1. BARACLUDE [Suspect]
     Active Substance: ENTECAVIR
     Indication: CHRONIC LYMPHOCYTIC LEUKAEMIA
     Dosage: 0.5 MG, UNK
     Route: 065

REACTIONS (2)
  - Overdose [Unknown]
  - Off label use [Unknown]
